FAERS Safety Report 6642048-2 (Version None)
Quarter: 2010Q1

REPORT INFORMATION
  Report Type: 
  Country: None (occurrence: None)
  Receive Date: 20100319
  Receipt Date: 20091211
  Transmission Date: 20100710
  Serious: Yes (Death, Other)
  Sender: FDA-Public Use
  Company Number: US-BAYER-200922930GPV

PATIENT

DRUGS (14)
  1. ALEMTUZUMAB [Suspect]
     Indication: ADULT T-CELL LYMPHOMA/LEUKAEMIA
     Dosage: TOTAL DAILY DOSE: 30 MG
     Route: 042
  2. ALEMTUZUMAB [Suspect]
     Dosage: TOTAL DAILY DOSE: 30 MG
     Route: 042
  3. ALEMTUZUMAB [Suspect]
     Dosage: TOTAL DAILY DOSE: 10 MG
     Route: 042
  4. ALEMTUZUMAB [Suspect]
     Dosage: TOTAL DAILY DOSE: 3 MG
     Route: 042
  5. PENTOSTATIN [Suspect]
     Indication: ADULT T-CELL LYMPHOMA/LEUKAEMIA
     Dosage: TOTAL DAILY DOSE: 4 MG/M2
     Route: 042
  6. PENTOSTATIN [Suspect]
     Dosage: TOTAL DAILY DOSE: 4 MG/M2
     Route: 042
  7. NORMAL SALINE [Concomitant]
     Indication: FLUID RETENTION
     Dosage: 500-1000 ML BEFORE AND AFTER EACH DOSE OF PENTOSTATIN
  8. ACYCLOVIR [Concomitant]
     Indication: ANTIVIRAL PROPHYLAXIS
  9. VALACICLOVIR [Concomitant]
     Indication: ANTIVIRAL PROPHYLAXIS
  10. VALGANCICLOVIR HCL [Concomitant]
     Indication: ANTIVIRAL PROPHYLAXIS
  11. FLUCONAZOLE [Concomitant]
     Indication: ANTIFUNGAL PROPHYLAXIS
  12. ITRACONAZOLE [Concomitant]
     Indication: ANTIFUNGAL PROPHYLAXIS
  13. VORICONAZOLE [Concomitant]
     Indication: ANTIFUNGAL PROPHYLAXIS
  14. TRIMETHOPRIM + SULFAMETHOXAZOLE [Concomitant]
     Indication: ANTIFUNGAL PROPHYLAXIS

REACTIONS (17)
  - ANAEMIA [None]
  - CYTOMEGALOVIRUS INFECTION [None]
  - FATIGUE [None]
  - FUNGAL INFECTION [None]
  - GASTROINTESTINAL DISORDER [None]
  - INFUSION RELATED REACTION [None]
  - LUNG INFECTION [None]
  - MULTI-ORGAN FAILURE [None]
  - MYCOBACTERIUM AVIUM COMPLEX INFECTION [None]
  - NEPHROPATHY TOXIC [None]
  - NEUTROPENIA [None]
  - OEDEMA [None]
  - PNEUMONIA BACTERIAL [None]
  - PNEUMONIA RESPIRATORY SYNCYTIAL VIRAL [None]
  - SEPSIS [None]
  - THROMBOCYTOPENIA [None]
  - TRANSAMINASES INCREASED [None]
